FAERS Safety Report 16383022 (Version 1)
Quarter: 2019Q2

REPORT INFORMATION
  Report Type: Spontaneous
  Country: GB (occurrence: GB)
  Receive Date: 20190603
  Receipt Date: 20190603
  Transmission Date: 20190711
  Serious: Yes (Disabling, Other)
  Sender: FDA-Public Use
  Company Number: GB-MYLANLABS-2019M1007573

PATIENT
  Age: 58 Year
  Sex: Male
  Weight: 99 kg

DRUGS (21)
  1. PREDNISOLONE. [Concomitant]
     Active Substance: PREDNISOLONE
     Dosage: 30 MILLIGRAM, QD,MORNING
     Dates: start: 20180606
  2. COCODAMOL [Concomitant]
     Active Substance: ACETAMINOPHEN\CODEINE PHOSPHATE
     Dosage: 1-2 (30MG/500MG) FOUR TO SIX HOURLY.
     Dates: start: 20180713
  3. TRAMADOL. [Suspect]
     Active Substance: TRAMADOL
     Indication: WHEEZING
  4. INDAPAMIDE. [Concomitant]
     Active Substance: INDAPAMIDE
     Dosage: 2.5 MILLIGRAM, QD
     Dates: start: 20180703
  5. DOXYCYCLINE. [Concomitant]
     Active Substance: DOXYCYCLINE
     Dosage: 2 IMMEDIATELY, THEN AS ABOVE IN THE MORNING.
     Dates: start: 20180606
  6. CITALOPRAM [Concomitant]
     Active Substance: CITALOPRAM HYDROBROMIDE
     Dosage: 20 MILLIGRAM, QD
     Dates: start: 20180703
  7. ZAPAIN [Concomitant]
     Active Substance: ACETAMINOPHEN\CODEINE PHOSPHATE
     Dosage: 1-2 (30MG/500MG) UP TO FOUR TIMES DAILY.
     Dates: start: 20180625
  8. TILDIEM [Concomitant]
     Active Substance: DILTIAZEM HYDROCHLORIDE
     Dosage: 120 MILLIGRAM, QD
     Dates: start: 20180703
  9. DOXYCYCLINE. [Concomitant]
     Active Substance: DOXYCYCLINE
     Dosage: 200 MILLIGRAM, QD,ON THE FIRST DAY, THEN ONE DAILY (MORNING)
     Dates: start: 20180606
  10. WARFARIN [Concomitant]
     Active Substance: WARFARIN
     Dosage: 3 MILLIGRAM,TO BE TAKEN AS PER INR RESULT
     Route: 065
     Dates: start: 20180412, end: 20180625
  11. VENTOLIN [Concomitant]
     Active Substance: ALBUTEROL SULFATE
     Dosage: 100 MICROGRAM, 1 TO 2 PUFFS UP TO FOUR TIMES DAILY.
     Dates: start: 20180703
  12. DIAZEPAM. [Concomitant]
     Active Substance: DIAZEPAM
     Dosage: 2 MILLIGRAM, QD,NIGHT
     Route: 048
     Dates: start: 20180625
  13. WARFARIN [Concomitant]
     Active Substance: WARFARIN
     Dosage: 1 MILLIGRAM,TO BE TAKEN AS PER INR RESULT
     Dates: start: 20180412, end: 20180625
  14. TRAMADOL. [Suspect]
     Active Substance: TRAMADOL
     Indication: BACK PAIN
     Dosage: 50 MILLIGRAM
     Route: 048
  15. RAMIPRIL. [Concomitant]
     Active Substance: RAMIPRIL
     Dosage: 10 MILLIGRAM, QD
     Dates: start: 20180509, end: 20180625
  16. WARFARIN [Concomitant]
     Active Substance: WARFARIN
     Dosage: 5 MILLIGRAM,TO BE TAKEN AS PER INR RESULT
     Route: 065
     Dates: start: 20180412, end: 20180625
  17. GABAPENTIN. [Concomitant]
     Active Substance: GABAPENTIN
     Route: 048
     Dates: start: 20180703
  18. SYMBICORT [Concomitant]
     Active Substance: BUDESONIDE\FORMOTEROL FUMARATE DIHYDRATE
     Dosage: 2 DOSAGE FORM, QD,PUFF (200/6)
     Route: 055
     Dates: start: 20180703
  19. RAMIPRIL. [Concomitant]
     Active Substance: RAMIPRIL
     Dosage: 10 MILLIGRAM, QD
     Dates: start: 20180509, end: 20180717
  20. ATORVASTATIN [Concomitant]
     Active Substance: ATORVASTATIN
     Dosage: 40 MILLIGRAM, QD
     Dates: start: 20180703
  21. ATORVASTATIN [Concomitant]
     Active Substance: ATORVASTATIN
     Dosage: 40 UNK
     Dates: start: 20180625, end: 20180717

REACTIONS (7)
  - Hyperhidrosis [Unknown]
  - Disorientation [Unknown]
  - Confusional state [Unknown]
  - Malaise [Unknown]
  - Pain [Unknown]
  - Dizziness [Recovered/Resolved]
  - Asthenia [Unknown]

NARRATIVE: CASE EVENT DATE: 20180323
